FAERS Safety Report 9195103 (Version 1)
Quarter: 2013Q1

REPORT INFORMATION
  Report Type: Spontaneous
  Country: US (occurrence: US)
  Receive Date: 20130328
  Receipt Date: 20130328
  Transmission Date: 20140127
  Serious: No
  Sender: FDA-Public Use
  Company Number: US-ALLERGAN-1303098US

PATIENT
  Age: 46 Year
  Sex: Female

DRUGS (1)
  1. LATISSE 0.03% [Suspect]
     Indication: GROWTH OF EYELASHES
     Dosage: 2 GTT, UNK
     Dates: start: 2011

REACTIONS (4)
  - Wrong technique in drug usage process [Unknown]
  - Madarosis [Unknown]
  - Eyelids pruritus [Recovered/Resolved]
  - Hair growth abnormal [Unknown]
